FAERS Safety Report 24262209 (Version 2)
Quarter: 2025Q2

REPORT INFORMATION
  Report Type: Spontaneous
  Country: GB (occurrence: GB)
  Receive Date: 20240829
  Receipt Date: 20250507
  Transmission Date: 20250716
  Serious: Yes (Death, Other)
  Sender: RANBAXY
  Company Number: GB-MHRA-MIDB-1fd64265-e596-424d-91ef-97bb82ad4745

PATIENT
  Age: 80 Year

DRUGS (11)
  1. SERTRALINE [Suspect]
     Active Substance: SERTRALINE HYDROCHLORIDE
     Indication: Product used for unknown indication
     Dosage: 50 MG TABLETS ONE TO BE TAKEN EACH DAY IN THE MORNING
     Route: 065
  2. EDOXABAN [Suspect]
     Active Substance: EDOXABAN
     Indication: Product used for unknown indication
     Dosage: 60 MG TABLETS ONE TO BE TAKEN EACH DAY IN THE MORNING
     Route: 065
  3. ACETAMINOPHEN [Concomitant]
     Active Substance: ACETAMINOPHEN
     Indication: Product used for unknown indication
     Route: 065
  4. GLICLAZIDE [Concomitant]
     Active Substance: GLICLAZIDE
     Indication: Product used for unknown indication
     Dosage: 40 MG TABLETS ONE TO BE TAKEN DAILY WITH BREAKFAST-AKL / NBM
     Route: 065
  5. ATORVASTATIN [Concomitant]
     Active Substance: ATORVASTATIN
     Indication: Product used for unknown indication
     Dosage: 80 MG TABLETS TAKE ONE DAILY - PRESCRIBED ON ON TTO DEC 2023
     Route: 065
  6. METFORMIN [Concomitant]
     Active Substance: METFORMIN HYDROCHLORIDE
     Indication: Product used for unknown indication
     Dosage: 1 G MODIFIED - RELEASE TABLETS ONE TO BE TAKEN TWICE A DAY MORNING AND TEATIME- AKI/NBM
     Route: 065
  7. NICORANDIL [Concomitant]
     Active Substance: NICORANDIL
     Indication: Product used for unknown indication
     Dosage: 20 MG TABLETS TAKE ONE TWICE DAILY-GIB
     Route: 065
  8. BISOPROLOL [Concomitant]
     Active Substance: BISOPROLOL
     Indication: Product used for unknown indication
     Dosage: 1.25 MG TABLETS 1 TABLET ONCE A DAY - PRESCRIBED OM ON TTO DEC 202
     Route: 065
  9. ALLOPURINOL [Concomitant]
     Active Substance: ALLOPURINOL
     Indication: Product used for unknown indication
     Dosage: 100 MG TABLETS ONE TO BE TAKEN EACH DAY
     Route: 065
  10. Ensure Compact [Concomitant]
     Indication: Product used for unknown indication
     Route: 065
  11. Ensure Compact [Concomitant]
     Indication: Product used for unknown indication
     Route: 065

REACTIONS (1)
  - Upper gastrointestinal haemorrhage [Fatal]
